FAERS Safety Report 13344579 (Version 1)
Quarter: 2017Q1

REPORT INFORMATION
  Report Type: Report from Study
  Country: JP (occurrence: JP)
  Receive Date: 20170317
  Receipt Date: 20170317
  Transmission Date: 20170428
  Serious: Yes (Hospitalization)
  Sender: FDA-Public Use
  Company Number: JP-ACTELION-A-CH2017-150980

PATIENT
  Age: 85 Year
  Sex: Female

DRUGS (7)
  1. BERASUS [Concomitant]
     Active Substance: BERAPROST SODIUM
  2. FUROSEMIDE. [Concomitant]
     Active Substance: FUROSEMIDE
  3. LIPITOR [Concomitant]
     Active Substance: ATORVASTATIN CALCIUM
  4. ARTIST [Concomitant]
     Active Substance: CARVEDILOL
  5. SPIRONOLACTONE. [Concomitant]
     Active Substance: SPIRONOLACTONE
  6. TRACLEER [Suspect]
     Active Substance: BOSENTAN
     Indication: SCLERODERMA ASSOCIATED DIGITAL ULCER
     Dosage: 62.5 MG, BID
     Route: 048
     Dates: start: 20151210, end: 20161004
  7. PARIET [Concomitant]
     Active Substance: RABEPRAZOLE SODIUM

REACTIONS (2)
  - Concomitant disease aggravated [Recovered/Resolved]
  - Hypertrophic cardiomyopathy [Recovered/Resolved]

NARRATIVE: CASE EVENT DATE: 20161004
